FAERS Safety Report 6190424-7 (Version None)
Quarter: 2009Q2

REPORT INFORMATION
  Report Type: 
  Country: None (occurrence: None)
  Receive Date: 20090514
  Receipt Date: 20090508
  Transmission Date: 20091009
  Serious: Yes (Other)
  Sender: FDA-Public Use
  Company Number: AU-BRISTOL-MYERS SQUIBB COMPANY-14619852

PATIENT
  Sex: Female

DRUGS (6)
  1. TAXOL [Suspect]
     Indication: BREAST CANCER
     Dosage: EVERY SECOND WEEK, HAS HAD TWO DOSES
  2. OMEPRAZOLE [Concomitant]
  3. DEXAMETHASONE 4MG TAB [Concomitant]
  4. ONDANSETRON [Concomitant]
  5. AMOXICILLIN [Concomitant]
  6. NAPROXEN [Concomitant]

REACTIONS (1)
  - HAEMOLYSIS [None]
